FAERS Safety Report 5374857-4 (Version None)
Quarter: 2007Q2

REPORT INFORMATION
  Report Type: 
  Country: None (occurrence: None)
  Receive Date: 20070629
  Receipt Date: 20070627
  Transmission Date: 20071010
  Serious: Yes (Disabling)
  Sender: FDA-Public Use
  Company Number: B0476948A

PATIENT
  Age: 55 Year
  Sex: Female
  Weight: 66.3 kg

DRUGS (1)
  1. AVANDIA [Suspect]
     Indication: GLUCOSE TOLERANCE IMPAIRED
     Dosage: 4MG PER DAY
     Route: 048
     Dates: start: 20050128, end: 20070625

REACTIONS (3)
  - ANKLE FRACTURE [None]
  - ARTHRALGIA [None]
  - ARTHRITIS [None]
